FAERS Safety Report 9458700 (Version 2)
Quarter: 2013Q4

REPORT INFORMATION
  Report Type: Spontaneous
  Country: IT (occurrence: IT)
  Receive Date: 20130814
  Receipt Date: 20131002
  Transmission Date: 20140711
  Serious: Yes (Hospitalization)
  Sender: FDA-Public Use
  Company Number: IT-ASTRAZENECA-2013SE61259

PATIENT
  Age: 30991 Day
  Sex: Female

DRUGS (2)
  1. ROSUVASTATIN [Suspect]
     Indication: DYSLIPIDAEMIA
     Route: 048
     Dates: start: 20110101, end: 20130725
  2. TICLOPIDIN [Suspect]
     Route: 048
     Dates: start: 20110101, end: 20130725

REACTIONS (3)
  - Eosinophilia [Recovered/Resolved with Sequelae]
  - Hepatitis cholestatic [Recovered/Resolved with Sequelae]
  - Hepatitis [Recovered/Resolved with Sequelae]
